FAERS Safety Report 18391981 (Version 5)
Quarter: 2021Q1

REPORT INFORMATION
  Report Type: Report from Study
  Country: CA (occurrence: CA)
  Receive Date: 20201016
  Receipt Date: 20210216
  Transmission Date: 20210419
  Serious: Yes (Hospitalization, Other)
  Sender: FDA-Public Use
  Company Number: CA-TAIHO ONCOLOGY  INC-EU-2020-03656

PATIENT
  Age: 31 Year
  Sex: Female
  Weight: 67.4 kg

DRUGS (2)
  1. LONSURF [Suspect]
     Active Substance: TIPIRACIL HYDROCHLORIDE\TRIFLURIDINE
     Dosage: CYCLE 2
     Route: 048
     Dates: start: 20200831
  2. LONSURF [Suspect]
     Active Substance: TIPIRACIL HYDROCHLORIDE\TRIFLURIDINE
     Indication: COLORECTAL CANCER METASTATIC
     Dosage: CYCLE 1
     Route: 048

REACTIONS (9)
  - Abdominal pain [Recovered/Resolved]
  - Product dose omission issue [Unknown]
  - Postoperative abscess [Unknown]
  - Anaemia [Recovering/Resolving]
  - Vomiting [Recovered/Resolved]
  - Toxicity to various agents [Unknown]
  - Intestinal obstruction [Unknown]
  - Nausea [Recovered/Resolved]
  - Fatigue [Recovering/Resolving]
